FAERS Safety Report 11499637 (Version 1)
Quarter: 2015Q3

REPORT INFORMATION
  Report Type: Spontaneous
  Country: US (occurrence: None)
  Receive Date: 20150911
  Receipt Date: 20150911
  Transmission Date: 20151125
  Serious: Yes (Other)
  Sender: FDA-Public Use
  Company Number: None

PATIENT
  Age: 80 Year
  Sex: Male
  Weight: 83 kg

DRUGS (13)
  1. POTASSIUM CHLORIDE (KLOR-CON M20) [Concomitant]
  2. ESBRIET [Suspect]
     Active Substance: PIRFENIDONE
     Indication: IDIOPATHIC PULMONARY FIBROSIS
     Dosage: 3 PILLS TID ORAL
     Route: 048
     Dates: start: 20150701, end: 20150910
  3. EPOETIN ALFA (PROCRIT) [Concomitant]
  4. MULTIPLE VITAMIN (CVS DAILY MULTIPLE) [Concomitant]
  5. DOXAZOSIN (CARDURA) [Concomitant]
  6. LOSARATAN (COZAAR) [Concomitant]
  7. PIRFENIDONE (ESBRIET) [Concomitant]
  8. LASIX [Concomitant]
     Active Substance: FUROSEMIDE
  9. METOPROLOL SUCCIANTE (TOPROL-XL) [Concomitant]
  10. PREVIDENT 5000 [Concomitant]
  11. DIPHENHYDRAMINE ACETAMINOPHEN (TYLENOL PM EXTRA STRENGTH) [Concomitant]
  12. ASCORBIC ACID (VITAMIN C) [Concomitant]
     Active Substance: ASCORBIC ACID
  13. COUMADIN [Concomitant]
     Active Substance: WARFARIN SODIUM

REACTIONS (2)
  - International normalised ratio decreased [None]
  - Drug effect decreased [None]

NARRATIVE: CASE EVENT DATE: 20150701
